FAERS Safety Report 4358068-7 (Version None)
Quarter: 2004Q2

REPORT INFORMATION
  Report Type: 
  Country: None (occurrence: None)
  Receive Date: 20040510
  Receipt Date: 20040427
  Transmission Date: 20050107
  Serious: Yes (Hospitalization, Disabling)
  Sender: FDA-Public Use
  Company Number: 2004-115551-NL

PATIENT
  Age: 46 Year
  Sex: Female

DRUGS (3)
  1. REMERON [Suspect]
     Dosage: 15 MG ORAL
     Route: 048
     Dates: start: 20040417
  2. TRAZODONE HCL [Suspect]
     Dosage: 100 MG ORAL
     Route: 048
  3. METHADONE HCL [Concomitant]

REACTIONS (6)
  - BLOOD SODIUM INCREASED [None]
  - COMA [None]
  - DEAFNESS NEUROSENSORY [None]
  - MULTIPLE DRUG OVERDOSE INTENTIONAL [None]
  - PYREXIA [None]
  - TACHYCARDIA [None]
